FAERS Safety Report 13051583 (Version 1)
Quarter: 2016Q4

REPORT INFORMATION
  Report Type: Spontaneous
  Country: US (occurrence: US)
  Receive Date: 20161221
  Receipt Date: 20161221
  Transmission Date: 20170207
  Serious: No
  Sender: FDA-Public Use
  Company Number: US-BAYER-2016-222775

PATIENT
  Age: 61 Year
  Sex: Female
  Weight: 92.97 kg

DRUGS (3)
  1. CLARITIN REDITABS [Suspect]
     Active Substance: LORATADINE
     Indication: NEURODERMATITIS
     Dosage: UNK UNK, BID
     Route: 048
     Dates: start: 2016, end: 2016
  2. CLARITIN REDITABS [Suspect]
     Active Substance: LORATADINE
     Indication: NEURODERMATITIS
     Dosage: 1 DF, TID
     Route: 048
     Dates: start: 2016
  3. CLARITIN REDITABS [Suspect]
     Active Substance: LORATADINE
     Indication: NEURODERMATITIS
     Dosage: 1 DF, QID
     Route: 048
     Dates: start: 2016

REACTIONS (3)
  - Therapeutic response unexpected [None]
  - Drug ineffective for unapproved indication [Unknown]
  - Product use issue [Unknown]
